FAERS Safety Report 18658848 (Version 4)
Quarter: 2021Q3

REPORT INFORMATION
  Report Type: Spontaneous
  Country: GB (occurrence: GB)
  Receive Date: 20201224
  Receipt Date: 20210818
  Transmission Date: 20211014
  Serious: Yes (Other)
  Sender: FDA-Public Use
  Company Number: GB-BIOVITRUM-2020GB7898

PATIENT
  Age: 46 Year
  Sex: Male

DRUGS (38)
  1. ORFADIN [Suspect]
     Active Substance: NITISINONE
     Dates: start: 2016
  2. LANSOPRAZOLE. [Concomitant]
     Active Substance: LANSOPRAZOLE
     Dates: start: 2012
  3. LANSOPRAZOLE. [Concomitant]
     Active Substance: LANSOPRAZOLE
     Dates: start: 2017
  4. SIMVASTATIN. [Concomitant]
     Active Substance: SIMVASTATIN
     Dates: start: 2015
  5. PREGABALIN. [Concomitant]
     Active Substance: PREGABALIN
     Dates: start: 2017
  6. ORFADIN [Suspect]
     Active Substance: NITISINONE
     Dates: start: 2014
  7. ORFADIN [Suspect]
     Active Substance: NITISINONE
     Dates: start: 2017
  8. LANSOPRAZOLE. [Concomitant]
     Active Substance: LANSOPRAZOLE
     Dates: start: 2019
  9. SIMVASTATIN. [Concomitant]
     Active Substance: SIMVASTATIN
     Dates: start: 2013
  10. ZAPAIN [Concomitant]
     Active Substance: ACETAMINOPHEN\CODEINE PHOSPHATE
     Dosage: 30/500 MG
     Dates: start: 2017
  11. IBUPROFEN. [Concomitant]
     Active Substance: IBUPROFEN
     Dates: start: 2019
  12. ORFADIN [Suspect]
     Active Substance: NITISINONE
     Indication: ALKAPTONURIA
     Dates: start: 2012
  13. ALFUZOSIN [Concomitant]
     Active Substance: ALFUZOSIN
     Dates: start: 2013
  14. ZAPAIN [Concomitant]
     Active Substance: ACETAMINOPHEN\CODEINE PHOSPHATE
     Dosage: 30/500 MG
     Dates: start: 2015
  15. ADCAL D3 [Concomitant]
     Active Substance: CALCIUM CARBONATE\CHOLECALCIFEROL
     Dates: start: 2015
  16. ORFADIN [Suspect]
     Active Substance: NITISINONE
     Dates: start: 2013
  17. ORFADIN [Suspect]
     Active Substance: NITISINONE
     Dates: start: 2019
  18. ALFUZOSIN [Concomitant]
     Active Substance: ALFUZOSIN
     Dates: start: 2012
  19. ALFUZOSIN [Concomitant]
     Active Substance: ALFUZOSIN
     Dates: start: 2014
  20. HUX D3 [Concomitant]
     Dates: start: 2016
  21. TRAMADOL. [Concomitant]
     Active Substance: TRAMADOL
     Dates: start: 2013
  22. LANSOPRAZOLE. [Concomitant]
     Active Substance: LANSOPRAZOLE
     Dates: start: 2013
  23. LANSOPRAZOLE. [Concomitant]
     Active Substance: LANSOPRAZOLE
     Dates: start: 2015
  24. LANSOPRAZOLE. [Concomitant]
     Active Substance: LANSOPRAZOLE
     Dates: start: 2016
  25. ZAPAIN [Concomitant]
     Active Substance: ACETAMINOPHEN\CODEINE PHOSPHATE
     Dosage: 30/500
     Dates: start: 2014
  26. ZAPAIN [Concomitant]
     Active Substance: ACETAMINOPHEN\CODEINE PHOSPHATE
     Dosage: 30/500 MG
     Dates: start: 2016
  27. ZAPAIN [Concomitant]
     Active Substance: ACETAMINOPHEN\CODEINE PHOSPHATE
     Dosage: 30/500 MG
     Dates: start: 2018
  28. ZAPAIN [Concomitant]
     Active Substance: ACETAMINOPHEN\CODEINE PHOSPHATE
     Dosage: 30/500
     Dates: start: 2019
  29. TRAMADOL. [Concomitant]
     Active Substance: TRAMADOL
     Dates: start: 2012
  30. ORFADIN [Suspect]
     Active Substance: NITISINONE
     Dates: start: 2015
  31. ORFADIN [Suspect]
     Active Substance: NITISINONE
     Dates: start: 2018
  32. LANSOPRAZOLE. [Concomitant]
     Active Substance: LANSOPRAZOLE
     Dates: start: 2014
  33. LANSOPRAZOLE. [Concomitant]
     Active Substance: LANSOPRAZOLE
     Dates: start: 2018
  34. PREGABALIN. [Concomitant]
     Active Substance: PREGABALIN
     Dates: start: 2018
  35. COLECALCIFEROL [Concomitant]
     Active Substance: CHOLECALCIFEROL
     Dates: start: 2019
  36. LIDOCAINE PATCHES [Concomitant]
     Active Substance: LIDOCAINE
  37. SIMVASTATIN. [Concomitant]
     Active Substance: SIMVASTATIN
     Dates: start: 2012
  38. SIMVASTATIN. [Concomitant]
     Active Substance: SIMVASTATIN
     Dates: start: 2014

REACTIONS (4)
  - Amino acid level increased [Not Recovered/Not Resolved]
  - Cataract [Unknown]
  - Lenticular opacities [Not Recovered/Not Resolved]
  - Conjunctival cyst [Not Recovered/Not Resolved]

NARRATIVE: CASE EVENT DATE: 2013
